FAERS Safety Report 16464029 (Version 3)
Quarter: 2019Q3

REPORT INFORMATION
  Report Type: Spontaneous
  Country: JP (occurrence: JP)
  Receive Date: 20190621
  Receipt Date: 20190830
  Transmission Date: 20191004
  Serious: Yes (Hospitalization, Other)
  Sender: FDA-Public Use
  Company Number: JP-PFIZER INC-2019016297

PATIENT
  Age: 86 Year
  Sex: Male
  Weight: 48 kg

DRUGS (1)
  1. EFFEXOR [Suspect]
     Active Substance: VENLAFAXINE HYDROCHLORIDE
     Indication: DEPRESSION
     Dosage: 37.5 MG, 1X/DAY
     Route: 048

REACTIONS (30)
  - Haematocrit decreased [Unknown]
  - Monocyte count increased [Unknown]
  - Blood sodium decreased [Unknown]
  - Lymphocyte count increased [Unknown]
  - Protein total decreased [Unknown]
  - Blood glucose increased [Unknown]
  - Ataxia [Unknown]
  - Hypokinesia [Unknown]
  - Dysphonia [Unknown]
  - Spinal compression fracture [Recovered/Resolved]
  - Parkinsonism [Recovering/Resolving]
  - Red blood cell count decreased [Unknown]
  - Neutrophil count decreased [Unknown]
  - Blood albumin decreased [Unknown]
  - Postural tremor [Unknown]
  - Constipation [Recovered/Resolved]
  - Cognitive disorder [Unknown]
  - Fall [Unknown]
  - Blood creatinine decreased [Unknown]
  - Dyslalia [Recovering/Resolving]
  - Hypertonia [Recovering/Resolving]
  - Head injury [Recovered/Resolved]
  - Haemoglobin decreased [Unknown]
  - Blood urea increased [Unknown]
  - Micrographia [Unknown]
  - C-reactive protein increased [Unknown]
  - Neurological examination abnormal [Unknown]
  - Dysphagia [Recovering/Resolving]
  - Dementia [Unknown]
  - Heart rate decreased [Recovered/Resolved]

NARRATIVE: CASE EVENT DATE: 20181222
